FAERS Safety Report 6645559-9 (Version None)
Quarter: 2010Q1

REPORT INFORMATION
  Report Type: 
  Country: None (occurrence: None)
  Receive Date: 20100323
  Receipt Date: 20100302
  Transmission Date: 20100710
  Serious: No
  Sender: FDA-Public Use
  Company Number: 2009BI028256

PATIENT
  Sex: Female

DRUGS (2)
  1. TYSABRI [Suspect]
     Indication: MULTIPLE SCLEROSIS
     Route: 042
     Dates: start: 20071108
  2. BACLOFEN [Concomitant]
     Indication: MUSCLE SPASMS

REACTIONS (15)
  - FATIGUE [None]
  - FLUSHING [None]
  - HYPERCALCAEMIA [None]
  - HYPOTHYROIDISM [None]
  - INFLUENZA [None]
  - INSOMNIA [None]
  - KIDNEY INFECTION [None]
  - LETHARGY [None]
  - PAIN [None]
  - RASH [None]
  - SINUSITIS [None]
  - TINNITUS [None]
  - TREMOR [None]
  - UPPER RESPIRATORY TRACT INFECTION [None]
  - WEIGHT INCREASED [None]
